FAERS Safety Report 5914699-1 (Version None)
Quarter: 2008Q4

REPORT INFORMATION
  Report Type: 
  Country: None (occurrence: None)
  Receive Date: 20081010
  Receipt Date: 20081002
  Transmission Date: 20090506
  Serious: Yes (Death)
  Sender: FDA-Public Use
  Company Number: US-JNJFOC-20081001301

PATIENT
  Sex: Male

DRUGS (1)
  1. DURAGESIC-100 [Suspect]
     Indication: BACK PAIN
     Route: 062

REACTIONS (2)
  - INCORRECT DRUG ADMINISTRATION RATE [None]
  - PRODUCT QUALITY ISSUE [None]
